FAERS Safety Report 13848340 (Version 1)
Quarter: 2017Q3

REPORT INFORMATION
  Report Type: Spontaneous
  Country: US (occurrence: US)
  Receive Date: 20170809
  Receipt Date: 20170809
  Transmission Date: 20171127
  Serious: No
  Sender: FDA-Public Use
  Company Number: US-PURDUE-USA-2017-0138886

PATIENT
  Sex: Female

DRUGS (2)
  1. VICODIN [Concomitant]
     Active Substance: ACETAMINOPHEN\HYDROCODONE BITARTRATE
     Indication: PRODUCT USED FOR UNKNOWN INDICATION
     Dosage: UNK
     Route: 065
  2. BUTRANS [Suspect]
     Active Substance: BUPRENORPHINE
     Indication: PAIN
     Dosage: 15 MCG/HR, WEEKLY
     Route: 062

REACTIONS (8)
  - Medication residue present [Not Recovered/Not Resolved]
  - Application site burn [Recovered/Resolved]
  - Application site papules [Recovered/Resolved]
  - Application site dryness [Not Recovered/Not Resolved]
  - Application site pruritus [Recovered/Resolved]
  - Product adhesion issue [Unknown]
  - Application site erythema [Recovered/Resolved]
  - Device leakage [Unknown]
